FAERS Safety Report 5633394-X (Version None)
Quarter: 2008Q1

REPORT INFORMATION
  Report Type: 
  Country: None (occurrence: None)
  Receive Date: 20080221
  Receipt Date: 20070502
  Transmission Date: 20080703
  Serious: No
  Sender: FDA-Public Use
  Company Number: A0649729A

PATIENT

DRUGS (1)
  1. ABACAVIR [Suspect]

REACTIONS (1)
  - HYPERSENSITIVITY [None]
